FAERS Safety Report 24281996 (Version 1)
Quarter: 2024Q3

REPORT INFORMATION
  Report Type: Spontaneous
  Country: US (occurrence: US)
  Receive Date: 20240904
  Receipt Date: 20240904
  Transmission Date: 20241017
  Serious: No
  Sender: JOHNSON AND JOHNSON
  Company Number: US-JNJFOC-20240903014

PATIENT
  Age: 52 Year
  Sex: Female
  Weight: 76.6 kg

DRUGS (12)
  1. OPSUMIT [Suspect]
     Active Substance: MACITENTAN
     Indication: Pulmonary hypertension
     Route: 048
  2. TREPROSTINIL [Suspect]
     Active Substance: TREPROSTINIL
     Indication: Pulmonary hypertension
     Dosage: 5 MG (1 TABLET OF 5 MG), ORAL (PO), THREE TIMES DAILY (TID).
     Route: 048
     Dates: start: 20221006
  3. TADALAFIL [Suspect]
     Active Substance: TADALAFIL
     Indication: Product used for unknown indication
     Route: 065
  4. POTASSIUM CHLORIDE [Concomitant]
     Active Substance: POTASSIUM CHLORIDE
  5. MAGNESIUM [Concomitant]
     Active Substance: MAGNESIUM
  6. ALLOPURINOL [Concomitant]
     Active Substance: ALLOPURINOL
  7. PROAIR HFA [Concomitant]
     Active Substance: ALBUTEROL SULFATE
  8. LORATADINE [Concomitant]
     Active Substance: LORATADINE
  9. ASPIRIN [Concomitant]
     Active Substance: ASPIRIN
  10. DIGOXIN [Concomitant]
     Active Substance: DIGOXIN
  11. IBUPROFEN [Concomitant]
     Active Substance: IBUPROFEN
  12. FISH OIL [Concomitant]
     Active Substance: FISH OIL

REACTIONS (10)
  - Accidental overdose [Unknown]
  - Diarrhoea [Unknown]
  - Migraine [Unknown]
  - Feeling hot [Recovered/Resolved]
  - Pain in extremity [Recovered/Resolved]
  - Superficial vein prominence [Recovered/Resolved]
  - Contusion [Not Recovered/Not Resolved]
  - Extra dose administered [Unknown]
  - Hot flush [Unknown]
  - Headache [Unknown]
